FAERS Safety Report 8923115 (Version 3)
Quarter: 2013Q1

REPORT INFORMATION
  Report Type: Spontaneous
  Country: PL (occurrence: PL)
  Receive Date: 20121123
  Receipt Date: 20130103
  Transmission Date: 20140127
  Serious: Yes (Hospitalization, Other)
  Sender: FDA-Public Use
  Company Number: PL-JNJFOC-20121109943

PATIENT
  Age: 60 Year
  Sex: Female

DRUGS (2)
  1. REMICADE [Suspect]
     Indication: RHEUMATOID ARTHRITIS
     Route: 042
     Dates: start: 200805, end: 200811
  2. CYCLOSPORIN A [Concomitant]
     Indication: RHEUMATOID ARTHRITIS
     Route: 065

REACTIONS (4)
  - Pericarditis tuberculous [Recovered/Resolved]
  - Tuberculous pleurisy [Recovered/Resolved]
  - Rheumatoid arthritis [Recovering/Resolving]
  - Pulmonary tuberculosis [Unknown]
